FAERS Safety Report 6461208-7 (Version None)
Quarter: 2009Q4

REPORT INFORMATION
  Report Type: 
  Country: None (occurrence: None)
  Receive Date: 20091123
  Receipt Date: 20091112
  Transmission Date: 20100525
  Serious: Yes (Hospitalization)
  Sender: FDA-Public Use
  Company Number: AT-1171405

PATIENT
  Age: 7 Year
  Sex: Female

DRUGS (1)
  1. CYCLOPENTOLATE HCL [Suspect]
     Indication: FUNDOSCOPY
     Dosage: 1 GTT X 3 OPHTHALMIC
     Route: 047
     Dates: start: 20090616, end: 20090616

REACTIONS (4)
  - CONFUSIONAL STATE [None]
  - COORDINATION ABNORMAL [None]
  - GRIP STRENGTH [None]
  - SPEECH DISORDER [None]
